FAERS Safety Report 8514478-5 (Version None)
Quarter: 2012Q3

REPORT INFORMATION
  Report Type: 
  Country: None (occurrence: None)
  Receive Date: 20120717
  Receipt Date: 20120712
  Transmission Date: 20120928
  Serious: Yes (Hospitalization, Congenital Anomaly, Other)
  Sender: FDA-Public Use
  Company Number: US-PFIZER INC-2012034294

PATIENT
  Sex: Male
  Weight: 3.1 kg

DRUGS (13)
  1. ZOLOFT [Suspect]
     Indication: ANXIETY
     Dosage: 25 MG, UNK
     Route: 064
  2. ZOFRAN ODT [Concomitant]
     Dosage: 08 MG, 4X/DAY
     Route: 064
     Dates: start: 20080201
  3. TYLENOL W/ CODEINE NO. 4 [Concomitant]
     Dosage: ONE TO TWO TABLETS EVERY 6 HOURS TO 8 HOURS
     Route: 064
     Dates: start: 20071218
  4. ZOLOFT [Suspect]
     Indication: DEPRESSION
     Dosage: 50 MG, EVERY DAY
     Route: 064
     Dates: start: 20061016
  5. THYROID TAB [Concomitant]
     Dosage: 30 MG, EVERY DAY
     Route: 064
     Dates: start: 20080110
  6. ZOLOFT [Suspect]
     Indication: AFFECTIVE DISORDER
  7. LYRICA [Concomitant]
     Dosage: 75 MG, 1X/DAY, (EVERY NIGHT)
     Route: 064
     Dates: start: 20080110
  8. MULTI-VITAMINS [Concomitant]
     Dosage: UNK
     Route: 064
  9. TRAMADOL [Concomitant]
     Dosage: 50MG TABLET, ONE TO TWO EVERY 6 HOURS
     Route: 064
     Dates: start: 20080103
  10. TYLENOL W/ CODEINE NO. 4 [Concomitant]
     Dosage: HALF TABLET, THREE TO FOUR TIMES A DAY
     Route: 064
     Dates: start: 20080110
  11. THYROID TAB [Concomitant]
     Dosage: 30 UG, 1X/DAY
     Route: 064
  12. TRAMADOL [Concomitant]
     Dosage: 50MG TABLET, THREE TO FOUR TIMES A DAY
     Route: 064
     Dates: start: 20080110
  13. VITAMIN B6 [Concomitant]
     Dosage: UNK
     Route: 064
     Dates: start: 20080822

REACTIONS (11)
  - JAUNDICE NEONATAL [None]
  - CYANOSIS [None]
  - SUPRAVENTRICULAR TACHYCARDIA [None]
  - MATERNAL EXPOSURE TIMING UNSPECIFIED [None]
  - FOETAL GROWTH RESTRICTION [None]
  - CONGENITAL NAEVUS [None]
  - EXOMPHALOS [None]
  - PATENT DUCTUS ARTERIOSUS [None]
  - SEPSIS NEONATAL [None]
  - NEONATAL RESPIRATORY DISTRESS SYNDROME [None]
  - ATRIAL SEPTAL DEFECT [None]
